FAERS Safety Report 13615989 (Version 1)
Quarter: 2017Q2

REPORT INFORMATION
  Report Type: Spontaneous
  Country: FR (occurrence: FR)
  Receive Date: 20170606
  Receipt Date: 20170606
  Transmission Date: 20170830
  Serious: Yes (Other)
  Sender: FDA-Public Use
  Company Number: FR-BAYER-2017-100676

PATIENT
  Sex: Female

DRUGS (1)
  1. MIRENA [Suspect]
     Active Substance: LEVONORGESTREL
     Dosage: 20 MCG/24HR, CONT
     Route: 015

REACTIONS (6)
  - Stress [Unknown]
  - Amenorrhoea [Unknown]
  - Hypertension [Unknown]
  - Depressed mood [Unknown]
  - Libido decreased [Unknown]
  - Anxiety [Unknown]
